FAERS Safety Report 6735127-2 (Version None)
Quarter: 2010Q2

REPORT INFORMATION
  Report Type: 
  Country: None (occurrence: None)
  Receive Date: 20100521
  Receipt Date: 20100506
  Transmission Date: 20101027
  Serious: Yes (Disabling)
  Sender: FDA-Public Use
  Company Number: GB-MYLANLABS-2010S1008134

PATIENT
  Age: 70 Year
  Sex: Male

DRUGS (8)
  1. WARFARIN SODIUM [Interacting]
     Indication: PULMONARY EMBOLISM
  2. CIPROFLOXACIN [Interacting]
     Indication: DRUG USE FOR UNKNOWN INDICATION
  3. ASPIRIN [Interacting]
     Indication: DRUG USE FOR UNKNOWN INDICATION
  4. CLOPIDOGREL [Interacting]
     Indication: DRUG USE FOR UNKNOWN INDICATION
  5. ERYTHROMYCIN [Suspect]
     Indication: CELLULITIS
     Route: 048
  6. METRONIDAZOLE [Interacting]
     Indication: DRUG USE FOR UNKNOWN INDICATION
  7. MEROPENEM [Concomitant]
     Indication: DRUG USE FOR UNKNOWN INDICATION
     Route: 051
  8. TEICOPLANIN [Concomitant]
     Indication: CELLULITIS
     Route: 030

REACTIONS (3)
  - DRUG INTERACTION [None]
  - HYPHAEMA [None]
  - INTERNATIONAL NORMALISED RATIO INCREASED [None]
